FAERS Safety Report 6057613-3 (Version None)
Quarter: 2009Q1

REPORT INFORMATION
  Report Type: 
  Country: None (occurrence: None)
  Receive Date: 20090129
  Receipt Date: 20081020
  Transmission Date: 20090719
  Serious: No
  Sender: FDA-Public Use
  Company Number: US-BAUSCH-2008BL004489

PATIENT
  Sex: Male

DRUGS (7)
  1. FLURBIPROFEN SODIUM [Suspect]
     Indication: EYE ALLERGY
     Route: 047
     Dates: start: 20081007, end: 20081016
  2. FLURBIPROFEN SODIUM [Suspect]
     Indication: OFF LABEL USE
     Route: 047
     Dates: start: 20081007, end: 20081016
  3. FLURBIPROFEN SODIUM [Suspect]
     Route: 047
     Dates: start: 20081017, end: 20081017
  4. FLURBIPROFEN SODIUM [Suspect]
     Route: 047
     Dates: start: 20081017, end: 20081017
  5. LIPITOR [Concomitant]
  6. PLAVIX [Concomitant]
  7. PATANOL [Concomitant]

REACTIONS (4)
  - DRUG INEFFECTIVE FOR UNAPPROVED INDICATION [None]
  - DYSPNOEA [None]
  - EYE IRRITATION [None]
  - KERATOCONJUNCTIVITIS SICCA [None]
